FAERS Safety Report 26062463 (Version 3)
Quarter: 2025Q4

REPORT INFORMATION
  Report Type: Spontaneous
  Country: JP (occurrence: JP)
  Receive Date: 20251119
  Receipt Date: 20251216
  Transmission Date: 20260118
  Serious: Yes (Death, Other)
  Sender: TAKEDA
  Company Number: JP-TAKEDA-2025TJP011714

PATIENT
  Age: 43 Year
  Sex: Female
  Weight: 45 kg

DRUGS (5)
  1. ALUNBRIG [Suspect]
     Active Substance: BRIGATINIB
     Indication: Non-small cell lung cancer stage IV
     Dosage: 90 MILLIGRAM
     Dates: start: 20250319, end: 20250325
  2. ALUNBRIG [Suspect]
     Active Substance: BRIGATINIB
     Dosage: 180 MILLIGRAM
     Dates: start: 20250326, end: 20250403
  3. ALUNBRIG [Suspect]
     Active Substance: BRIGATINIB
     Dosage: 60 MILLIGRAM
     Dates: start: 20250409, end: 20250502
  4. NAPROXEN SODIUM [Concomitant]
     Active Substance: NAPROXEN SODIUM
     Indication: Non-small cell lung cancer
     Dosage: UNK
  5. LOXOPROFEN [Concomitant]
     Active Substance: LOXOPROFEN
     Indication: Non-small cell lung cancer
     Dosage: UNK

REACTIONS (1)
  - Death [Fatal]

NARRATIVE: CASE EVENT DATE: 20250515
